FAERS Safety Report 8590342-0 (Version None)
Quarter: 2012Q3

REPORT INFORMATION
  Report Type: 
  Country: None (occurrence: None)
  Receive Date: 20120813
  Receipt Date: 20120803
  Transmission Date: 20120928
  Serious: Yes (Other)
  Sender: FDA-Public Use
  Company Number: US-AMGEN-USASP2012049130

PATIENT

DRUGS (5)
  1. PROCRIT [Suspect]
     Indication: ANAEMIA
  2. BLOOD CELLS, PACKED HUMAN [Concomitant]
     Indication: ANAEMIA
  3. ARANESP [Suspect]
     Indication: ANAEMIA
  4. BLOOD TRANSFUSION, AUXILIARY PRODUCTS [Concomitant]
     Indication: ANAEMIA
  5. CHEMOTHERAPEUTICS [Concomitant]
     Indication: OVARIAN CANCER

REACTIONS (1)
  - OVARIAN CANCER RECURRENT [None]
